FAERS Safety Report 8173617-9 (Version None)
Quarter: 2012Q1

REPORT INFORMATION
  Report Type: 
  Country: None (occurrence: None)
  Receive Date: 20120224
  Receipt Date: 20120213
  Transmission Date: 20120608
  Serious: Yes (Hospitalization)
  Sender: FDA-Public Use
  Company Number: 1198362

PATIENT
  Sex: Male
  Weight: 2.4 kg

DRUGS (14)
  1. ESMOLOL HCL [Suspect]
     Indication: VENTRICULAR ARRHYTHMIA
     Dosage: 66;30;200;250;500 MCG/KG/MIN, INTRAVENOUS DRIP
     Route: 041
  2. POTASSIUM CHLORIDE [Concomitant]
  3. FENTANYL CITRATE [Suspect]
     Indication: ANAESTHESIA
     Dosage: 5 UG/KG, MICROGRAM/KILOGRAM,
  4. FENTANYL CITRATE [Suspect]
     Indication: ARRHYTHMIA
     Dosage: 5 UG/KG, MICROGRAM/KILOGRAM,
  5. SODIUM HYDROGEN CARBONATE [Concomitant]
  6. ALBUMIN (HUMAN) [Concomitant]
  7. PHENYTOIN [Suspect]
     Indication: VENTRICULAR ARRHYTHMIA
     Dosage: 8;5MG/KG MILLIGRAM(S)/KILOGRAM, INTRAVENOUS BOLUS
     Route: 040
  8. LIDOCAINE HCL [Suspect]
     Indication: VENTRICULAR ARRHYTHMIA
     Dosage: 1;40;50 MG/KG MILLIGRAM(S)/KILOGRAM, INTRAVENOUS BOLUS
     Route: 040
  9. CLCIUM GLUCONATE [Concomitant]
  10. VECURONIUM BROMIDE [Concomitant]
  11. ISOPROTERENOL HYDROCHLORIDE [Concomitant]
  12. AMIODARONE HCL [Suspect]
     Indication: VENTRICULAR ARRHYTHMIA
     Dosage: 1;3MG/DOSE, INTRAVENOUS BOLUS
     Route: 040
  13. MAGNESIUM SULFATE [Suspect]
     Indication: VENTRICULAR ARRHYTHMIA
     Dosage: I25 MG/KG PER DOSE, NTRAVENOUS BOLUS
     Route: 040
  14. MILRINONE [Concomitant]

REACTIONS (5)
  - DRUG INTERACTION [None]
  - CARDIAC DISORDER [None]
  - NASOPHARYNGITIS [None]
  - NEUROTOXICITY [None]
  - TOXICITY TO VARIOUS AGENTS [None]
